FAERS Safety Report 9221473 (Version 2)
Quarter: 2013Q2

REPORT INFORMATION
  Report Type: Spontaneous
  Country: US (occurrence: None)
  Receive Date: 20130408
  Receipt Date: 20130408
  Transmission Date: 20140414
  Serious: Yes (Other)
  Sender: FDA-Public Use
  Company Number: US-TORRENT-00000585

PATIENT
  Age: 57 Year
  Sex: Female

DRUGS (1)
  1. ZOLPIDEM TARTRATE [Suspect]
     Indication: PRODUCT USED FOR UNKNOWN INDICATION
     Dosage: TAKE TWO TABLETS

REACTIONS (6)
  - Shoplifting [None]
  - Alcohol use [None]
  - Migraine [None]
  - Loss of employment [None]
  - Memory impairment [None]
  - Abnormal sleep-related event [None]
